FAERS Safety Report 6703701-5 (Version None)
Quarter: 2010Q2

REPORT INFORMATION
  Report Type: 
  Country: None (occurrence: None)
  Receive Date: 20100430
  Receipt Date: 20100226
  Transmission Date: 20101027
  Serious: No
  Sender: FDA-Public Use
  Company Number: A0847035A

PATIENT
  Age: 83 Year
  Sex: Female

DRUGS (2)
  1. FLOVENT [Suspect]
     Dosage: 2PUFF TWICE PER DAY
     Route: 055
  2. MULTIPLE MEDICATIONS [Concomitant]

REACTIONS (1)
  - DRUG DISPENSING ERROR [None]
